FAERS Safety Report 6627786-X (Version None)
Quarter: 2010Q1

REPORT INFORMATION
  Report Type: 
  Country: None (occurrence: None)
  Receive Date: 20100311
  Receipt Date: 20100302
  Transmission Date: 20100710
  Serious: Yes (Other)
  Sender: FDA-Public Use
  Company Number: US-ASTRAZENECA-2009UW05464

PATIENT
  Age: 54 Year
  Sex: Female
  Weight: 99.8 kg

DRUGS (25)
  1. CRESTOR [Suspect]
     Indication: BLOOD CHOLESTEROL INCREASED
     Route: 048
     Dates: start: 20080901, end: 20090220
  2. PLAVIX [Suspect]
     Route: 048
     Dates: start: 20081001
  3. FUROSEMIDE [Suspect]
     Route: 048
     Dates: start: 20090201
  4. FUROSEMIDE [Suspect]
     Route: 048
     Dates: end: 20090201
  5. NEXIUM [Concomitant]
     Route: 048
  6. LISINOPRIL [Concomitant]
  7. FENTANYL [Concomitant]
     Indication: OSTEOPOROSIS
  8. ASPIRIN [Concomitant]
     Dosage: 325 MG
  9. NASACORT [Concomitant]
     Dosage: PRN
     Route: 045
  10. OXCARBAZEPINE [Concomitant]
  11. ZOLPIDEM [Concomitant]
  12. ZYRTEC [Concomitant]
  13. SPIRIVA [Concomitant]
     Dosage: PRN
  14. MIRALAX [Concomitant]
     Dosage: PRN
  15. NITROGLYCERIN [Concomitant]
  16. TOPICAL MEDICATIONS FOR PSORIASIS [Concomitant]
  17. ADVAIR DISKUS 100/50 [Concomitant]
  18. ALBUTEROL [Concomitant]
     Route: 055
  19. AMLODIPINE [Concomitant]
  20. BUPROPION HCL [Concomitant]
     Indication: TOBACCO USER
  21. CLONAZEPAM [Concomitant]
     Dosage: =
  22. COLACE [Concomitant]
     Dosage: =
  23. DUROSEMIDE [Concomitant]
  24. NEURONTIN [Concomitant]
  25. LEVOTHYROXINE SODIUM [Concomitant]

REACTIONS (27)
  - ARTHRALGIA [None]
  - ASTHENIA [None]
  - BACK PAIN [None]
  - CAROTID ARTERY STENT INSERTION [None]
  - CHEST PAIN [None]
  - CHROMATURIA [None]
  - CONDITION AGGRAVATED [None]
  - CONSTIPATION [None]
  - DIZZINESS [None]
  - DYSPNOEA [None]
  - ENZYME ABNORMALITY [None]
  - FATIGUE [None]
  - HEADACHE [None]
  - HEPATIC ENZYME INCREASED [None]
  - JOINT SWELLING [None]
  - MUSCULAR WEAKNESS [None]
  - MUSCULOSKELETAL STIFFNESS [None]
  - MYALGIA [None]
  - MYOCARDIAL INFARCTION [None]
  - OEDEMA PERIPHERAL [None]
  - PAIN [None]
  - PARAESTHESIA [None]
  - POLLAKIURIA [None]
  - PULMONARY CONGESTION [None]
  - SWELLING [None]
  - WEIGHT INCREASED [None]
  - WHEEZING [None]
